FAERS Safety Report 5634904-9 (Version None)
Quarter: 2008Q1

REPORT INFORMATION
  Report Type: 
  Country: None (occurrence: None)
  Receive Date: 20080222
  Receipt Date: 20080212
  Transmission Date: 20080703
  Serious: Yes (Other)
  Sender: FDA-Public Use
  Company Number: PL-ABBOTT-08P-129-0438365-00

PATIENT

DRUGS (1)
  1. VALPROATE SODIUM [Suspect]
     Indication: PARTIAL SEIZURES
     Dosage: NOT REPORTED

REACTIONS (1)
  - MYOCARDIAL INFARCTION [None]
